FAERS Safety Report 15860345 (Version 1)
Quarter: 2019Q1

REPORT INFORMATION
  Report Type: Spontaneous
  Country: US (occurrence: US)
  Receive Date: 20190123
  Receipt Date: 20190123
  Transmission Date: 20190417
  Serious: Yes (Other)
  Sender: FDA-Public Use
  Company Number: US-LUNDBECK-DKLU2059614

PATIENT

DRUGS (8)
  1. CANNABIDIOL [Suspect]
     Active Substance: CANNABIDIOL
     Indication: ATONIC SEIZURES
  2. CLOBAZAM. [Suspect]
     Active Substance: CLOBAZAM
     Indication: EPILEPSY
     Route: 065
  3. CLOBAZAM. [Suspect]
     Active Substance: CLOBAZAM
     Indication: DRUG RESISTANCE
  4. CANNABIDIOL [Suspect]
     Active Substance: CANNABIDIOL
     Indication: EPILEPSY
     Route: 065
  5. CANNABIDIOL [Suspect]
     Active Substance: CANNABIDIOL
     Indication: LENNOX-GASTAUT SYNDROME
  6. CANNABIDIOL [Suspect]
     Active Substance: CANNABIDIOL
     Indication: DRUG RESISTANCE
  7. CLOBAZAM. [Suspect]
     Active Substance: CLOBAZAM
     Indication: ATONIC SEIZURES
  8. CLOBAZAM. [Suspect]
     Active Substance: CLOBAZAM
     Indication: LENNOX-GASTAUT SYNDROME

REACTIONS (2)
  - Pneumonia [Unknown]
  - Acute respiratory failure [Unknown]
